FAERS Safety Report 5935193-8 (Version None)
Quarter: 2008Q4

REPORT INFORMATION
  Report Type: 
  Country: None (occurrence: None)
  Receive Date: 20081028
  Receipt Date: 20081016
  Transmission Date: 20090506
  Serious: Yes (Hospitalization)
  Sender: FDA-Public Use
  Company Number: SPV1-2008-02222

PATIENT
  Age: 43 Year
  Sex: Male
  Weight: 120.2 kg

DRUGS (2)
  1. LIALDA [Suspect]
     Indication: COLITIS ULCERATIVE
     Dosage: 4.8 G, 1XDAY:QD, ORAL
     Route: 048
     Dates: start: 20080910, end: 20080925
  2. PROTONIX /01263201/ (PANTOPRAZOLE) [Concomitant]

REACTIONS (2)
  - INFLUENZA [None]
  - MYOCARDITIS [None]
